FAERS Safety Report 12340023 (Version 2)
Quarter: 2016Q2

REPORT INFORMATION
  Report Type: Spontaneous
  Country: ES (occurrence: ES)
  Receive Date: 20160506
  Receipt Date: 20160608
  Transmission Date: 20160815
  Serious: Yes (Death)
  Sender: FDA-Public Use
  Company Number: ES-HOSPIRA-3271132

PATIENT
  Age: 75 Year
  Sex: Male
  Weight: 51 kg

DRUGS (11)
  1. ENALAPRIL [Concomitant]
     Active Substance: ENALAPRIL
     Indication: HYPERTENSION
     Dosage: 20 MG, FREQ: 1 HOUR; INTERVAL: 24
     Dates: end: 20160413
  2. PARACETAMOL [Concomitant]
     Active Substance: ACETAMINOPHEN
     Indication: PAIN
     Dosage: 1 G, FREQ: 1 HOUR; INTERVAL: 8
     Dates: end: 20160413
  3. MEGESTROL [Concomitant]
     Active Substance: MEGESTROL
     Dosage: 160 MG, FREQ: 1 HOUR; INTERVAL: 24
     Dates: start: 20160413
  4. ATROVENT [Concomitant]
     Active Substance: IPRATROPIUM BROMIDE
     Indication: CHRONIC OBSTRUCTIVE PULMONARY DISEASE
     Dosage: UNK
     Route: 055
     Dates: end: 20160413
  5. TARDYFERON [Concomitant]
     Active Substance: FERROUS SULFATE\FOLIC ACID
     Indication: ANAEMIA
     Dosage: UNK
     Dates: end: 20160413
  6. BUDESONIDE. [Concomitant]
     Active Substance: BUDESONIDE
     Indication: CHRONIC OBSTRUCTIVE PULMONARY DISEASE
     Dosage: UNK
     Route: 055
     Dates: end: 20160413
  7. HEPARIN SODIUM. [Suspect]
     Active Substance: HEPARIN SODIUM
     Indication: ANTICOAGULANT THERAPY
     Dosage: 150 MG, TOTAL
     Route: 042
     Dates: start: 20160414, end: 20160414
  8. ASPIRIN /00002701/ [Concomitant]
     Active Substance: ASPIRIN
     Dosage: 100 MG, FREQ: 1 HOUR; INTERVAL: 24
     Dates: end: 20160413
  9. ATORVASTATIN [Concomitant]
     Active Substance: ATORVASTATIN
     Indication: DYSLIPIDAEMIA
     Dosage: 20 MG, FREQ: 1 HOUR; INTERVAL: 24
     Dates: end: 20160413
  10. SEREVENT DISKUS [Concomitant]
     Active Substance: SALMETEROL XINAFOATE
     Indication: CHRONIC OBSTRUCTIVE PULMONARY DISEASE
     Dosage: UNK
     Route: 055
     Dates: end: 20160413
  11. PANTOPRAZOL [Concomitant]
     Active Substance: PANTOPRAZOLE SODIUM
     Dosage: UNK
     Dates: end: 20160413

REACTIONS (5)
  - Renal ischaemia [Fatal]
  - Drug ineffective [Fatal]
  - Splenic thrombosis [Fatal]
  - Intestinal ischaemia [Fatal]
  - Hepatic ischaemia [Fatal]

NARRATIVE: CASE EVENT DATE: 20160414
